FAERS Safety Report 4931823-8 (Version None)
Quarter: 2006Q1

REPORT INFORMATION
  Report Type: 
  Country: None (occurrence: None)
  Receive Date: 20060303
  Receipt Date: 20060221
  Transmission Date: 20060701
  Serious: Yes (Hospitalization)
  Sender: FDA-Public Use
  Company Number: BE-BRISTOL-MYERS SQUIBB COMPANY-13298658

PATIENT
  Sex: Female

DRUGS (4)
  1. GLUCOVANCE [Suspect]
     Dosage: DOSAGE FORM = 2.5 MG/500 MG
     Route: 048
  2. FLUDEX [Concomitant]
     Route: 048
  3. LEXOTAN [Concomitant]
     Route: 048
  4. BUFLOMEDIL [Concomitant]
     Route: 048

REACTIONS (2)
  - DIABETES MELLITUS [None]
  - HEPATITIS CHOLESTATIC [None]
